FAERS Safety Report 4992724-2 (Version None)
Quarter: 2006Q1

REPORT INFORMATION
  Report Type: 
  Country: None (occurrence: None)
  Receive Date: 20060316
  Receipt Date: 20050603
  Transmission Date: 20060701
  Serious: Yes (Other)
  Sender: FDA-Public Use
  Company Number: 18813

PATIENT
  Sex: Female
  Weight: 23 kg

DRUGS (5)
  1. PAMIDRONATE DISODIUM [Suspect]
     Indication: OSTEOPOROSIS
     Dosage: 17.5MG IV
     Route: 042
     Dates: start: 20050603
  2. TYLENOL (GELTAB) [Concomitant]
  3. TRAZONDONE [Concomitant]
  4. SINGULAIR [Concomitant]
  5. CLONAZEPAM [Concomitant]

REACTIONS (1)
  - EXTRAVASATION [None]
